FAERS Safety Report 10905695 (Version 1)
Quarter: 2015Q1

REPORT INFORMATION
  Report Type: Spontaneous
  Country: US (occurrence: None)
  Receive Date: 20150309
  Receipt Date: 20150309
  Transmission Date: 20150721
  Serious: Yes (Hospitalization, Disabling, Other)
  Sender: FDA-Public Use
  Company Number: None

PATIENT
  Age: 62 Year
  Sex: Female
  Weight: 54.43 kg

DRUGS (7)
  1. CIPRO [Suspect]
     Active Substance: CIPROFLOXACIN HYDROCHLORIDE
     Indication: GASTROINTESTINAL INFECTION
     Dosage: UNKNOWN, CONTINUAL, INTRAVENOUS
     Route: 042
  2. MULTI-VITAMIN [Concomitant]
     Active Substance: .ALPHA.-TOCOPHEROL ACETATE, DL-\ASCORBIC ACID\CYANOCOBALAMIN\FLUORIDE ION\FOLIC ACID\NIACIN\PYRIDOXINE\RIBOFLAVIN\THIAMINE\VITAMIN A\VITAMIN D
  3. CANDESARTAN [Concomitant]
     Active Substance: CANDESARTAN
  4. ISOTONIC [Concomitant]
  5. DEXTROAMPHETAMINE [Concomitant]
     Active Substance: DEXTROAMPHETAMINE
  6. MODAFINAL (MODAFINIL) [Concomitant]
     Active Substance: MODAFINIL
  7. LINZESS [Concomitant]
     Active Substance: LINACLOTIDE

REACTIONS (4)
  - Paraesthesia [None]
  - Arthralgia [None]
  - Myalgia [None]
  - Sensory disturbance [None]

NARRATIVE: CASE EVENT DATE: 20141120
